FAERS Safety Report 5538356-9 (Version None)
Quarter: 2007Q4

REPORT INFORMATION
  Report Type: 
  Country: None (occurrence: None)
  Receive Date: 20071205
  Receipt Date: 20071126
  Transmission Date: 20080405
  Serious: Yes (Other)
  Sender: FDA-Public Use
  Company Number: CERZ-12001

PATIENT
  Age: 74 Year
  Sex: Male
  Weight: 76.2 kg

DRUGS (1)
  1. CEREZYME [Suspect]
     Indication: GAUCHER'S DISEASE
     Dosage: 6400 UNITS Q4WKS IV
     Route: 042
     Dates: start: 20021014, end: 20071127

REACTIONS (3)
  - HEPATIC NEOPLASM [None]
  - PYREXIA [None]
  - VENOUS THROMBOSIS [None]
